FAERS Safety Report 11797764 (Version 1)
Quarter: 2015Q4

REPORT INFORMATION
  Report Type: Spontaneous
  Country: DE (occurrence: DE)
  Receive Date: 20151203
  Receipt Date: 20151203
  Transmission Date: 20160305
  Serious: Yes (Hospitalization)
  Sender: FDA-Public Use
  Company Number: DE-TEVA-612168GER

PATIENT
  Age: 64 Year
  Sex: Female

DRUGS (17)
  1. HYDROCHLOROTHIAZID [Interacting]
     Active Substance: HYDROCHLOROTHIAZIDE
     Dosage: LONG TERM
     Route: 048
  2. CYMBALTA [Concomitant]
     Active Substance: DULOXETINE HYDROCHLORIDE
     Route: 048
     Dates: start: 20141206, end: 20141221
  3. DOXEPIN [Concomitant]
     Active Substance: DOXEPIN
     Route: 048
     Dates: end: 20150111
  4. DOXEPIN [Concomitant]
     Active Substance: DOXEPIN
     Route: 048
     Dates: start: 20150112
  5. QUILONORM RETARD [Suspect]
     Active Substance: LITHIUM CARBONATE
     Route: 048
     Dates: start: 20141209, end: 20141220
  6. QUILONORM RETARD [Suspect]
     Active Substance: LITHIUM CARBONATE
     Dosage: 450-0 MG
     Route: 048
     Dates: start: 20150106, end: 20150118
  7. CYMBALTA [Concomitant]
     Active Substance: DULOXETINE HYDROCHLORIDE
     Route: 048
     Dates: start: 20141028, end: 20141127
  8. CYMBALTA [Concomitant]
     Active Substance: DULOXETINE HYDROCHLORIDE
     Route: 048
     Dates: start: 20141128, end: 20141130
  9. QUILONORM RETARD [Suspect]
     Active Substance: LITHIUM CARBONATE
     Route: 048
     Dates: end: 20141203
  10. CARMEN [Concomitant]
     Active Substance: LERCANIDIPINE
     Route: 048
     Dates: start: 201410
  11. QUILONORM RETARD [Suspect]
     Active Substance: LITHIUM CARBONATE
     Route: 048
     Dates: start: 20141221, end: 20150105
  12. CYMBALTA [Concomitant]
     Active Substance: DULOXETINE HYDROCHLORIDE
     Route: 048
     Dates: start: 20141201, end: 20141205
  13. BISOPROLOL [Concomitant]
     Active Substance: BISOPROLOL
     Route: 048
  14. SPIRONOLACTON [Interacting]
     Active Substance: SPIRONOLACTONE
     Route: 048
     Dates: start: 20141128, end: 20141205
  15. CYMBALTA [Concomitant]
     Active Substance: DULOXETINE HYDROCHLORIDE
     Route: 048
     Dates: start: 20141222
  16. QUILONORM RETARD [Suspect]
     Active Substance: LITHIUM CARBONATE
     Route: 048
     Dates: start: 20141204, end: 20141205
  17. MOXONIDIN [Concomitant]
     Active Substance: MOXONIDINE
     Route: 048
     Dates: start: 20141028, end: 20141208

REACTIONS (2)
  - Toxicity to various agents [Recovered/Resolved]
  - Drug interaction [None]

NARRATIVE: CASE EVENT DATE: 20141201
